FAERS Safety Report 25506589 (Version 1)
Quarter: 2025Q3

REPORT INFORMATION
  Report Type: Spontaneous
  Country: US (occurrence: US)
  Receive Date: 20250702
  Receipt Date: 20250702
  Transmission Date: 20251021
  Serious: No
  Sender: MERCK SHARP & DOHME LLC
  Company Number: US-009507513-2301861

PATIENT
  Age: 13 Year
  Sex: Male

DRUGS (2)
  1. LETERMOVIR [Suspect]
     Active Substance: LETERMOVIR
     Indication: Antiviral prophylaxis
     Route: 048
  2. FOSCARNET [Concomitant]
     Active Substance: FOSCARNET
     Indication: Antiviral prophylaxis

REACTIONS (1)
  - Off label use [Unknown]
